FAERS Safety Report 6779014-2 (Version None)
Quarter: 2010Q2

REPORT INFORMATION
  Report Type: 
  Country: None (occurrence: None)
  Receive Date: 20100618
  Receipt Date: 20100609
  Transmission Date: 20101027
  Serious: Yes (Other)
  Sender: FDA-Public Use
  Company Number: CA-PFIZER INC-2010072812

PATIENT
  Age: 25 Year
  Sex: Female

DRUGS (3)
  1. ZELDOX [Suspect]
     Indication: PSYCHOTIC DISORDER
     Dosage: UNK
     Dates: start: 20100603
  2. ZELDOX [Suspect]
     Dosage: 80 MG, 2X/DAY
     Dates: end: 20100607
  3. OLANZAPINE [Concomitant]
     Dosage: 5 MG, UNK

REACTIONS (11)
  - ASTHENIA [None]
  - COGNITIVE DISORDER [None]
  - FEELING ABNORMAL [None]
  - FEELING COLD [None]
  - HYPOAESTHESIA [None]
  - IMPAIRED WORK ABILITY [None]
  - MUSCLE TWITCHING [None]
  - MUSCULAR WEAKNESS [None]
  - NAUSEA [None]
  - PALLOR [None]
  - SOMNOLENCE [None]
